FAERS Safety Report 12807644 (Version 1)
Quarter: 2016Q4

REPORT INFORMATION
  Report Type: Spontaneous
  Country: US (occurrence: US)
  Receive Date: 20161004
  Receipt Date: 20161004
  Transmission Date: 20170207
  Serious: No
  Sender: FDA-Public Use
  Company Number: US-AMGEN-USASP2016026388

PATIENT
  Age: 77 Year
  Sex: Female

DRUGS (3)
  1. XGEVA [Suspect]
     Active Substance: DENOSUMAB
     Indication: METASTASES TO BONE
     Dosage: UNK, Q4WK
     Route: 065
  2. PROZAC [Concomitant]
     Active Substance: FLUOXETINE HYDROCHLORIDE
  3. XELODA [Concomitant]
     Active Substance: CAPECITABINE

REACTIONS (6)
  - Bladder spasm [Unknown]
  - Toothache [Not Recovered/Not Resolved]
  - Nausea [Unknown]
  - Dental caries [Unknown]
  - Fatigue [Unknown]
  - Blood calcium decreased [Unknown]
